FAERS Safety Report 25919769 (Version 1)
Quarter: 2025Q4

REPORT INFORMATION
  Report Type: Spontaneous
  Country: US (occurrence: US)
  Receive Date: 20251014
  Receipt Date: 20251014
  Transmission Date: 20260118
  Serious: No
  Sender: BOTANIX PHARMACEUTICALS
  Company Number: US-BOTANIX PHARMACEUTICALS-2025BOT00244

PATIENT
  Age: 30 Year
  Sex: Female

DRUGS (1)
  1. SOFDRA [Suspect]
     Active Substance: SOFPIRONIUM BROMIDE
     Dosage: APPLY 1 PUMP (AS A THIN LAYER) TO EACH UNDERARM AS DIRECTED BY PHYSICIAN ONCE NIGHTLY AT BEDTIME
     Route: 061
     Dates: end: 2025

REACTIONS (2)
  - Application site irritation [Recovered/Resolved]
  - Application site erythema [Recovered/Resolved]

NARRATIVE: CASE EVENT DATE: 20250601
